FAERS Safety Report 21388648 (Version 2)
Quarter: 2022Q4

REPORT INFORMATION
  Report Type: Report from Study
  Country: JP (occurrence: JP)
  Receive Date: 20220928
  Receipt Date: 20221007
  Transmission Date: 20230113
  Serious: Yes (Hospitalization, Other)
  Sender: FDA-Public Use
  Company Number: JP-BRISTOL-MYERS SQUIBB COMPANY-2022-110358

PATIENT
  Age: 74 Year
  Sex: Male
  Weight: 78 kg

DRUGS (17)
  1. CARBOPLATIN [Suspect]
     Active Substance: CARBOPLATIN
     Indication: Non-small cell lung cancer
     Dosage: PATIENT RECEIVED MOST RECENT DOSE OF 250 MG, ON 04-AUG-2022
     Route: 065
     Dates: start: 20220617
  2. PACLITAXEL [Suspect]
     Active Substance: PACLITAXEL
     Indication: Non-small cell lung cancer
     Dosage: PATIENT RECEIVED MOST RECENT DOSE OF 85.5 MG, ON 04-AUG-2022
     Route: 065
     Dates: start: 20220617
  3. CALONAL TAB [Concomitant]
     Indication: Peripheral sensory neuropathy
     Route: 048
     Dates: start: 2022
  4. CALONAL TAB [Concomitant]
     Indication: Arthralgia
     Route: 048
     Dates: start: 20220618
  5. CALONAL TAB [Concomitant]
     Indication: Radiation oesophagitis
  6. SODIUM ALGINATE [Concomitant]
     Active Substance: SODIUM ALGINATE
     Indication: Radiation oesophagitis
     Dosage: 3 TIMES PER DAY
     Route: 050
     Dates: start: 20220721, end: 20220914
  7. LANSOPRAZOLE [Concomitant]
     Active Substance: LANSOPRAZOLE
     Indication: Radiation oesophagitis
     Route: 048
     Dates: start: 20220725
  8. AMLODIPINE BESYLATE\AZILSARTAN [Concomitant]
     Active Substance: AMLODIPINE BESYLATE\AZILSARTAN
     Indication: Product used for unknown indication
     Dosage: 1DF=1 UNIT NOS
     Route: 048
     Dates: start: 2022
  9. CYMBALTA CAPSULES 20MG [Concomitant]
     Indication: Product used for unknown indication
     Route: 048
     Dates: start: 2021
  10. LOXONIN TAPE 100MG [Concomitant]
     Indication: Product used for unknown indication
     Dosage: 1DF (TAPE 100MG)=3 UNITS NOS,
     Route: 061
     Dates: start: 2021
  11. ASTOMIN [Concomitant]
     Indication: COVID-19
     Dosage: 1DF=10 MG, 3 TIMES PER DAY
     Route: 048
     Dates: start: 20220809, end: 20220915
  12. CARBOCYSTEINE [Concomitant]
     Active Substance: CARBOCYSTEINE
     Indication: COVID-19
     Dosage: 3 TIMES PER DAY
     Route: 048
     Dates: start: 20220809, end: 20220915
  13. SENNOSIDE TAB.12MG TAKEDA TEVA [Concomitant]
     Indication: Constipation
     Route: 048
     Dates: start: 20220619
  14. CODEINE PHOSPHATE [Concomitant]
     Active Substance: CODEINE PHOSPHATE
     Indication: COVID-19
     Route: 048
     Dates: start: 20220813, end: 20220915
  15. HEPARINOID OIL-BASED CREAM 0.3% [Concomitant]
     Indication: Dry skin
     Dosage: 1 DF (OIL-BASED CREAM 0.3%)=1 UNIT NOS
     Route: 061
     Dates: start: 20220623, end: 20220902
  16. MYSER [Concomitant]
     Indication: Rash pruritic
     Dosage: 1 DF=1UNIT NOS
     Route: 061
     Dates: start: 20220915, end: 20220920
  17. ALLEGRA TABLETS [Concomitant]
     Indication: Rash pruritic
     Route: 048
     Dates: start: 20220915, end: 20220921

REACTIONS (1)
  - Hepatitis [Not Recovered/Not Resolved]

NARRATIVE: CASE EVENT DATE: 20220915
